FAERS Safety Report 21009589 (Version 2)
Quarter: 2022Q2

REPORT INFORMATION
  Report Type: Spontaneous
  Country: US (occurrence: US)
  Receive Date: 20220627
  Receipt Date: 20220627
  Transmission Date: 20220721
  Serious: No
  Sender: FDA-Public Use
  Company Number: ALC2021US006385

PATIENT
  Sex: Female

DRUGS (1)
  1. PATADAY ONCE DAILY RELIEF [Suspect]
     Active Substance: OLOPATADINE HYDROCHLORIDE
     Indication: Product used for unknown indication
     Dosage: UNK (1 BOTTLE)
     Route: 065

REACTIONS (7)
  - Tongue discomfort [Recovered/Resolved]
  - Ageusia [Recovered/Resolved]
  - Oral discomfort [Recovered/Resolved]
  - Stomatitis [Recovered/Resolved]
  - Chapped lips [Recovered/Resolved]
  - Eyelid margin crusting [Recovered/Resolved]
  - Eye pruritus [Recovered/Resolved]

NARRATIVE: CASE EVENT DATE: 20211114
